FAERS Safety Report 23551047 (Version 1)
Quarter: 2024Q1

REPORT INFORMATION
  Report Type: Spontaneous
  Country: CO (occurrence: CO)
  Receive Date: 20240222
  Receipt Date: 20240222
  Transmission Date: 20240409
  Serious: Yes (Hospitalization)
  Sender: FDA-Public Use
  Company Number: CO-AMGEN-COLSP2024034266

PATIENT
  Age: 58 Year
  Sex: Female

DRUGS (1)
  1. REPATHA [Suspect]
     Active Substance: EVOLOCUMAB
     Indication: Product used for unknown indication
     Dosage: 140 MILLIGRAM, EVERY 15 DAYS
     Route: 058
     Dates: start: 2022, end: 202402

REACTIONS (5)
  - Unevaluable event [Unknown]
  - Asthenia [Unknown]
  - Hypoaesthesia [Unknown]
  - Dysarthria [Unknown]
  - Headache [Unknown]
